FAERS Safety Report 8808778 (Version 2)
Quarter: 2012Q4

REPORT INFORMATION
  Report Type: 
  Country: FR (occurrence: FR)
  Receive Date: 20120926
  Receipt Date: 20121121
  Transmission Date: 20130627
  Serious: Yes (Hospitalization)
  Sender: FDA-Public Use
  Company Number: FR-PFIZER INC-2012234228

PATIENT
  Age: 76 Year
  Sex: Male

DRUGS (10)
  1. ALDACTONE [Suspect]
     Dosage: UNK
     Route: 048
     Dates: end: 20120618
  2. HEMIGOXINE NATIVELLE [Suspect]
     Indication: ATRIAL FIBRILLATION
     Dosage: 1 DF, 1x/day
     Route: 048
     Dates: start: 201102, end: 20120613
  3. CORDARONE [Suspect]
     Indication: ATRIAL FIBRILLATION
     Dosage: 200 mg, 1x/day
     Route: 048
  4. LASILIX [Suspect]
     Indication: CARDIAC INSUFFICIENCY
     Dosage: 500 mg, 1x/day
     Route: 048
     Dates: end: 20120613
  5. LASILIX [Suspect]
     Dosage: 1/4 of tablet a day
     Dates: start: 20120615
  6. PREVISCAN [Concomitant]
     Dosage: 20 mg
  7. LEVOTHYROX [Concomitant]
     Dosage: 75 ?g
  8. CRESTOR [Concomitant]
     Dosage: 5 mg
  9. DIFFU K [Concomitant]
  10. EUPANTOL [Concomitant]
     Dosage: 40 mg

REACTIONS (2)
  - Cardioactive drug level increased [Recovered/Resolved]
  - Cardiac failure [Recovered/Resolved]
